FAERS Safety Report 8053452-2 (Version None)
Quarter: 2012Q1

REPORT INFORMATION
  Report Type: 
  Country: None (occurrence: None)
  Receive Date: 20120118
  Receipt Date: 20111219
  Transmission Date: 20120608
  Serious: Yes (Hospitalization)
  Sender: FDA-Public Use
  Company Number: JP-GLAXOSMITHKLINE-B0771104A

PATIENT
  Sex: Male

DRUGS (7)
  1. PILSICAINIDE HYDROCHLORIDE [Concomitant]
     Indication: ARRHYTHMIA
     Dosage: 50MG PER DAY
     Route: 048
  2. WARFARIN SODIUM [Concomitant]
     Indication: ARRHYTHMIA
     Dosage: 1MG PER DAY
     Route: 048
  3. PROPRANOLOL HCL [Concomitant]
     Indication: ARRHYTHMIA
     Dosage: 20MG PER DAY
     Route: 048
  4. FLUTICASONE PROPIONATE/SALMETEROL [Suspect]
     Indication: ASTHMA
     Dosage: 1000MCG PER DAY
     Route: 055
     Dates: start: 20111215, end: 20111218
  5. FLUTICASONE PROPIONATE/SALMETEROL [Suspect]
     Dosage: 500MCG PER DAY
     Route: 055
     Dates: start: 20111201
  6. CHINESE MEDICINE [Suspect]
     Indication: OEDEMA
     Route: 048
     Dates: start: 20111101
  7. AMLODIPINE BESYLATE [Concomitant]
     Indication: HYPERTENSION
     Dosage: 2.5MG PER DAY
     Route: 048

REACTIONS (2)
  - NOCTURIA [None]
  - DYSPNOEA [None]
